FAERS Safety Report 4804181-7 (Version None)
Quarter: 2005Q4

REPORT INFORMATION
  Report Type: 
  Country: None (occurrence: None)
  Receive Date: 20051014
  Receipt Date: 20051007
  Transmission Date: 20060501
  Serious: Yes (Hospitalization, Other)
  Sender: FDA-Public Use
  Company Number: KII-2005-0019006

PATIENT
  Age: 37 Year
  Sex: Female

DRUGS (3)
  1. OXYCODONE HCL [Suspect]
     Indication: DRUG USE FOR UNKNOWN INDICATION
     Dosage: ORAL
     Route: 048
  2. ANTIPSYCHOTICS (ANTIPSYCHOTICS) [Suspect]
     Indication: DRUG USE FOR UNKNOWN INDICATION
     Dosage: ORAL
     Route: 048
  3. BENZODIAZEPINE DERIVATIVES (BENZODIAZEPINE DERIVATIVES) [Suspect]
     Indication: DRUG USE FOR UNKNOWN INDICATION

REACTIONS (15)
  - AREFLEXIA [None]
  - BLOOD CREATINE PHOSPHOKINASE INCREASED [None]
  - BODY TEMPERATURE INCREASED [None]
  - COMA [None]
  - HEAD INJURY [None]
  - HYPOKINESIA [None]
  - JOINT STIFFNESS [None]
  - MEMORY IMPAIRMENT [None]
  - MIOSIS [None]
  - OXYGEN SATURATION DECREASED [None]
  - PUPILLARY REFLEX IMPAIRED [None]
  - SOMNOLENCE [None]
  - TACHYCARDIA [None]
  - TROPONIN INCREASED [None]
  - VOMITING [None]
